FAERS Safety Report 24680613 (Version 2)
Quarter: 2025Q3

REPORT INFORMATION
  Report Type: Spontaneous
  Country: EU (occurrence: EU)
  Receive Date: 20241129
  Receipt Date: 20250807
  Transmission Date: 20251021
  Serious: Yes (Other)
  Sender: PFIZER
  Company Number: None

PATIENT
  Age: 52 Year
  Sex: Female
  Weight: 72 kg

DRUGS (1)
  1. PROVERA [Suspect]
     Active Substance: MEDROXYPROGESTERONE ACETATE
     Indication: Menstruation irregular
     Dosage: 1 X PER DAY 1 TABLET: COURSE FOR 39 DAYS
     Route: 048
     Dates: start: 20240723

REACTIONS (8)
  - Vaginal haemorrhage [Recovered/Resolved]
  - Pruritus [Recovered/Resolved]
  - Biliary colic [Recovered/Resolved]
  - Renal colic [Recovering/Resolving]
  - Withdrawal syndrome [Recovering/Resolving]
  - Vitamin D deficiency [Unknown]
  - Calcium deficiency [Unknown]
  - Haemoglobin decreased [Unknown]
